FAERS Safety Report 15265529 (Version 1)
Quarter: 2018Q3

REPORT INFORMATION
  Report Type: Spontaneous
  Country: UM (occurrence: UM)
  Receive Date: 20180723
  Receipt Date: 20180723
  Transmission Date: 20181010
  Serious: Yes (Hospitalization)
  Sender: FDA-Public Use
  Company Number: None

PATIENT
  Age: 58 Year
  Sex: Female

DRUGS (1)
  1. VALSARTEN [Suspect]
     Active Substance: VALSARTAN
     Indication: HYPERTENSION
     Dosage: ?          QUANTITY:1 DF DOSAGE FORM;OTHER ROUTE:BY MOUTH?

REACTIONS (9)
  - Blood urine present [None]
  - Vision blurred [None]
  - Chest pain [None]
  - Night sweats [None]
  - Abdominal pain upper [None]
  - Hypoaesthesia [None]
  - Dizziness [None]
  - Heart rate increased [None]
  - Headache [None]

NARRATIVE: CASE EVENT DATE: 20180704
